FAERS Safety Report 24855933 (Version 1)
Quarter: 2025Q1

REPORT INFORMATION
  Report Type: Spontaneous
  Country: US (occurrence: US)
  Receive Date: 20250117
  Receipt Date: 20250117
  Transmission Date: 20250409
  Serious: Yes (Other)
  Sender: MYLAN
  Company Number: US-MYLANLABS-2025M1003736

PATIENT
  Age: 65 Year
  Sex: Male

DRUGS (3)
  1. VORICONAZOLE [Suspect]
     Active Substance: VORICONAZOLE
     Indication: Antifungal treatment
     Dosage: 400 MILLIGRAM, BID, FOR 1 DAY
     Route: 065
  2. VORICONAZOLE [Suspect]
     Active Substance: VORICONAZOLE
     Dosage: 200 MILLIGRAM, BID
     Route: 065
  3. VORICONAZOLE [Suspect]
     Active Substance: VORICONAZOLE
     Dosage: 150 MILLIGRAM, BID, INITIALLY DOSE REDUCED AND THEN DISCONTINUED
     Route: 065

REACTIONS (2)
  - Toxicity to various agents [Recovering/Resolving]
  - Periostitis [Recovering/Resolving]
